FAERS Safety Report 5332118-3 (Version None)
Quarter: 2007Q2

REPORT INFORMATION
  Report Type: 
  Country: None (occurrence: None)
  Receive Date: 20070521
  Receipt Date: 20070507
  Transmission Date: 20071010
  Serious: Yes (Death, Hospitalization, Other)
  Sender: FDA-Public Use
  Company Number: 163-21880-07040668

PATIENT
  Age: 51 Year
  Sex: Female

DRUGS (9)
  1. REVLIMID [Suspect]
     Indication: MULTIPLE MYELOMA
     Dosage: 25 MG; 10 MG, DAILY 21D/28D, ORAL
     Route: 048
     Dates: start: 20060901, end: 20061117
  2. REVLIMID [Suspect]
     Indication: MULTIPLE MYELOMA
     Dosage: 25 MG; 10 MG, DAILY 21D/28D, ORAL
     Route: 048
     Dates: start: 20061117, end: 20061201
  3. VICODIN [Concomitant]
  4. PHOSLO [Concomitant]
  5. NEPHROCAPS (NEPHROCAPS) [Concomitant]
  6. NEUPOGEN [Concomitant]
  7. DOCUSATE SODIUM (DOCUSATE SODIUM) [Concomitant]
  8. CULTURELLE (CULTURELLE) [Concomitant]
  9. OMEPRAZOLE [Concomitant]

REACTIONS (7)
  - BLOOD GLUCOSE DECREASED [None]
  - HYPOTENSION [None]
  - HYPOXIA [None]
  - PANCYTOPENIA [None]
  - PNEUMONIA [None]
  - RENAL FAILURE CHRONIC [None]
  - SEPTIC SHOCK [None]
